FAERS Safety Report 25658671 (Version 1)
Quarter: 2025Q3

REPORT INFORMATION
  Report Type: Spontaneous
  Country: US (occurrence: US)
  Receive Date: 20250808
  Receipt Date: 20250808
  Transmission Date: 20251020
  Serious: Yes (Other)
  Sender: Unknown Manufacturer
  Company Number: US-STRIDES ARCOLAB LIMITED-2025OS000367

PATIENT
  Age: 44 Year
  Sex: Female

DRUGS (6)
  1. ETOPOSIDE [Suspect]
     Active Substance: ETOPOSIDE
     Indication: Papilloma viral infection
     Route: 065
  2. ETOPOSIDE [Suspect]
     Active Substance: ETOPOSIDE
     Indication: Neuroendocrine carcinoma of the cervix
  3. ETOPOSIDE [Suspect]
     Active Substance: ETOPOSIDE
     Indication: Adenocarcinoma of the cervix
  4. CISPLATIN [Suspect]
     Active Substance: CISPLATIN
     Indication: Papilloma viral infection
     Route: 065
  5. CISPLATIN [Suspect]
     Active Substance: CISPLATIN
     Indication: Neuroendocrine carcinoma of the cervix
  6. CISPLATIN [Suspect]
     Active Substance: CISPLATIN
     Indication: Adenocarcinoma of the cervix

REACTIONS (3)
  - Neoplasm recurrence [None]
  - Metastases to lung [Unknown]
  - Off label use [Unknown]
